FAERS Safety Report 13988212 (Version 1)
Quarter: 2017Q3

REPORT INFORMATION
  Report Type: Spontaneous
  Country: US (occurrence: US)
  Receive Date: 20170919
  Receipt Date: 20170919
  Transmission Date: 20171128
  Serious: Yes (Other)
  Sender: FDA-Public Use
  Company Number: US-3M HEALTH CARE-USEN-A6KRNG

PATIENT

DRUGS (2)
  1. HIBICLENS [Concomitant]
     Active Substance: CHLORHEXIDINE GLUCONATE
  2. DURAPREP [Suspect]
     Active Substance: IODINE POVACRYLEX\ISOPROPYL ALCOHOL
     Indication: PREOPERATIVE CARE
     Dosage: 26 ML MILLILITRE(S), SINGLE
     Route: 061
     Dates: start: 20160120

REACTIONS (2)
  - Skin reaction [Unknown]
  - Oedema [Unknown]

NARRATIVE: CASE EVENT DATE: 20160121
